FAERS Safety Report 6153142-7 (Version None)
Quarter: 2009Q2

REPORT INFORMATION
  Report Type: 
  Country: None (occurrence: None)
  Receive Date: 20090413
  Receipt Date: 20090406
  Transmission Date: 20091009
  Serious: Yes (Hospitalization)
  Sender: FDA-Public Use
  Company Number: MY-RB-013678-09

PATIENT
  Age: 35 Year
  Sex: Male

DRUGS (2)
  1. SUBUTEX [Suspect]
     Indication: DRUG USE FOR UNKNOWN INDICATION
     Dosage: UNKNOWN DOSAGE
     Route: 042
  2. DORMICUM [Suspect]
     Indication: DRUG USE FOR UNKNOWN INDICATION
     Dosage: UNKNOWN DOSAGE AND FORM
     Route: 042

REACTIONS (16)
  - BACK PAIN [None]
  - CARDIAC VALVE VEGETATION [None]
  - CYSTITIS KLEBSIELLA [None]
  - DELIRIUM [None]
  - EJECTION FRACTION DECREASED [None]
  - EMPYEMA [None]
  - ENDOCARDITIS [None]
  - HEPATITIS C [None]
  - INTENTIONAL DRUG MISUSE [None]
  - INTERVERTEBRAL DISCITIS [None]
  - JAUNDICE [None]
  - PNEUMONIA [None]
  - PNEUMONIA STAPHYLOCOCCAL [None]
  - SEPTIC EMBOLUS [None]
  - SEPTIC SHOCK [None]
  - STAPHYLOCOCCAL INFECTION [None]
